FAERS Safety Report 19835718 (Version 1)
Quarter: 2021Q3

REPORT INFORMATION
  Report Type: Spontaneous
  Country: CA (occurrence: CA)
  Receive Date: 20210915
  Receipt Date: 20210915
  Transmission Date: 20211014
  Serious: Yes (Hospitalization, Other)
  Sender: FDA-Public Use
  Company Number: CA-PFIZER INC-202101145764

PATIENT
  Age: 8 Year
  Sex: Male
  Weight: 47 kg

DRUGS (2)
  1. CARBOPLATIN. [Suspect]
     Active Substance: CARBOPLATIN
     Indication: BRAIN NEOPLASM
     Dosage: UNK
     Route: 065
  2. AZACITIDINE. [Suspect]
     Active Substance: AZACITIDINE
     Indication: BRAIN NEOPLASM
     Dosage: 94 MG/M2
     Route: 065

REACTIONS (2)
  - Off label use [Unknown]
  - Skin infection [Recovered/Resolved]
